FAERS Safety Report 5657903-X (Version None)
Quarter: 2008Q1

REPORT INFORMATION
  Report Type: 
  Country: None (occurrence: None)
  Receive Date: 20080310
  Receipt Date: 20080301
  Transmission Date: 20080703
  Serious: Yes (Other)
  Sender: FDA-Public Use
  Company Number: PHFR2008GB01017

PATIENT
  Age: 36 Year
  Sex: Male

DRUGS (1)
  1. CLOZARIL [Suspect]
     Indication: SCHIZOPHRENIA
     Dosage: UNK, UNK
     Route: 048
     Dates: start: 20041206, end: 20080228

REACTIONS (5)
  - NEUTROPENIA [None]
  - NEUTROPHIL COUNT DECREASED [None]
  - TOOTH INFECTION [None]
  - TOOTHACHE [None]
  - WHITE BLOOD CELL COUNT DECREASED [None]
